FAERS Safety Report 5567402-1 (Version None)
Quarter: 2007Q4

REPORT INFORMATION
  Report Type: 
  Country: None (occurrence: None)
  Receive Date: 20071214
  Receipt Date: 20071129
  Transmission Date: 20080405
  Serious: Yes (Other)
  Sender: FDA-Public Use
  Company Number: STI-2007-02030

PATIENT
  Sex: Female

DRUGS (3)
  1. 520C CLARIPEL (HYDROQUINONE) (4% GEL) [Suspect]
     Indication: SKIN HYPERPIGMENTATION
     Dosage: (AT NIGHT AND IN MORNING)
     Route: 061
     Dates: start: 20071101
  2. FEMAINE (FEMODENE) [Concomitant]
  3. EPISOL SPF 45 (SUNSCREEN) [Concomitant]

REACTIONS (1)
  - MENORRHAGIA [None]
